FAERS Safety Report 24035474 (Version 1)
Quarter: 2024Q3

REPORT INFORMATION
  Report Type: Spontaneous
  Country: US (occurrence: US)
  Receive Date: 20240701
  Receipt Date: 20240701
  Transmission Date: 20241017
  Serious: No
  Sender: PFIZER
  Company Number: US-PFIZER INC-202400202710

PATIENT
  Age: 44 Year
  Sex: Female
  Weight: 77.11 kg

DRUGS (1)
  1. ESTRADIOL [Suspect]
     Active Substance: ESTRADIOL
     Dosage: UNK

REACTIONS (3)
  - Drug ineffective [Unknown]
  - Sluggishness [Unknown]
  - Feeling abnormal [Unknown]
